FAERS Safety Report 4390068-3 (Version None)
Quarter: 2004Q2

REPORT INFORMATION
  Report Type: 
  Country: None (occurrence: None)
  Receive Date: 20040630
  Receipt Date: 20040618
  Transmission Date: 20050107
  Serious: Yes (Other)
  Sender: FDA-Public Use
  Company Number: PERI00204002065

PATIENT
  Age: 59 Year
  Sex: Female

DRUGS (3)
  1. ACEON [Suspect]
     Indication: HYPERTENSION
     Dosage: 4 MG BID PO
     Route: 048
     Dates: start: 20040614, end: 20040614
  2. SYMBICORT (FORMOTEROL) [Concomitant]
  3. DICLOFENAC (DICLOFENAC) [Concomitant]

REACTIONS (3)
  - ANGIONEUROTIC OEDEMA [None]
  - SENSE OF OPPRESSION [None]
  - URTICARIA [None]
